FAERS Safety Report 9688568 (Version 1)
Quarter: 2013Q4

REPORT INFORMATION
  Report Type: Spontaneous
  Country: US (occurrence: None)
  Receive Date: 20131112
  Receipt Date: 20131112
  Transmission Date: 20140711
  Serious: Yes (Other)
  Sender: FDA-Public Use
  Company Number: 2013-US-002709

PATIENT
  Age: 45 Year
  Sex: Female
  Weight: 72.6 kg

DRUGS (6)
  1. XYREM [Suspect]
     Indication: CATAPLEXY
     Route: 048
     Dates: start: 201310, end: 201310
  2. SAPHRIS [Concomitant]
  3. LORAZEPAM (LORAZEPAM) [Concomitant]
  4. SYNTHROID (LEVOTHYROXINE SODIUM) [Concomitant]
  5. FENTANYL (FENTANYL) [Concomitant]
  6. MULTIVITAMIN (ASCORBIC ACID, BIOTIN, CALCIUM, CHOLINE BITARTRATE, CHROMIUM, COPPER, FOLIC ACID, INOSITIL, IODINEM IRON, MAGNESIUM, MANGANASE, MOLYBDENUM, NICOTINAMIDE, PANTHOTHENIC ACID, PHOSPHORUS, POTASSIUM, PYRIDOXINE, RETINOL, RIBOFLAVIN, SELENIUM, T [Concomitant]

REACTIONS (6)
  - Bipolar I disorder [None]
  - Dyskinesia [None]
  - Restless legs syndrome [None]
  - Insomnia [None]
  - Dyspepsia [None]
  - Abdominal pain upper [None]
